FAERS Safety Report 10022754 (Version 1)
Quarter: 2014Q1

REPORT INFORMATION
  Report Type: Spontaneous
  Country: US (occurrence: US)
  Receive Date: 20140319
  Receipt Date: 20140319
  Transmission Date: 20141002
  Serious: Yes (Death)
  Sender: FDA-Public Use
  Company Number: US-ACTAVIS-2014-04893

PATIENT
  Age: 18 Year
  Sex: Female

DRUGS (2)
  1. HYDROMORPHONE HYDROCHLORIDE (WATSON LABORATORIES) [Suspect]
     Indication: OROPHARYNGEAL PAIN
     Dosage: UNKNOWN - VIA PCA
     Route: 042
  2. MORPHINE SULFATE (AELLC) [Suspect]
     Indication: OROPHARYNGEAL PAIN
     Dosage: UNKNOWN
     Route: 042

REACTIONS (1)
  - Respiratory depression [Fatal]
